FAERS Safety Report 9792618 (Version 1)
Quarter: 2014Q1

REPORT INFORMATION
  Report Type: Spontaneous
  Country: US (occurrence: US)
  Receive Date: 20140102
  Receipt Date: 20140102
  Transmission Date: 20141002
  Serious: No
  Sender: FDA-Public Use
  Company Number: US-SA-2013SA101299

PATIENT
  Age: 36 Year
  Sex: Female

DRUGS (8)
  1. AUBAGIO [Suspect]
     Route: 048
     Dates: start: 20130211
  2. LORTAB [Concomitant]
     Indication: BACK PAIN
     Dosage: 7.5/500
     Route: 048
     Dates: start: 2012
  3. FIORICET [Concomitant]
     Indication: HEADACHE
     Route: 048
     Dates: start: 2011
  4. MECLIZINE [Concomitant]
     Indication: VERTIGO
     Route: 048
     Dates: start: 2012
  5. GABAPENTIN [Concomitant]
     Indication: PAIN
     Route: 048
     Dates: start: 201304
  6. TRAMADOL [Concomitant]
     Indication: PAIN
     Route: 048
     Dates: start: 2011
  7. BACLOFEN [Concomitant]
     Indication: MUSCLE SPASTICITY
     Route: 048
     Dates: start: 2011
  8. CYMBALTA [Concomitant]
     Indication: DEPRESSION
     Route: 048
     Dates: start: 201212

REACTIONS (2)
  - Alopecia [Unknown]
  - Condition aggravated [Unknown]
